FAERS Safety Report 4807201-9 (Version None)
Quarter: 2005Q4

REPORT INFORMATION
  Report Type: 
  Country: None (occurrence: None)
  Receive Date: 20051024
  Receipt Date: 20050829
  Transmission Date: 20060501
  Serious: Yes (Other)
  Sender: FDA-Public Use
  Company Number: PHEH2005US09689

PATIENT
  Age: 30 Year
  Sex: Female

DRUGS (4)
  1. ZOLEDRONATE [Suspect]
  2. LUPRON [Concomitant]
     Dosage: UNK, UNK
  3. FEMARA [Concomitant]
     Dosage: 2.5 MG, QD
  4. HERCEPTIN [Concomitant]
     Dosage: UNK, UNK

REACTIONS (5)
  - GINGIVAL PAIN [None]
  - OSTEONECROSIS [None]
  - PAIN IN JAW [None]
  - SENSITIVITY OF TEETH [None]
  - WHEEZING [None]
